FAERS Safety Report 11043743 (Version 2)
Quarter: 2015Q2

REPORT INFORMATION
  Report Type: Spontaneous
  Country: US (occurrence: US)
  Receive Date: 20150417
  Receipt Date: 20150512
  Transmission Date: 20150821
  Serious: Yes (Other)
  Sender: FDA-Public Use
  Company Number: GXBR2015US001213

PATIENT

DRUGS (2)
  1. FUROSEMIDE TABLETS USP [Suspect]
     Active Substance: FUROSEMIDE
     Indication: HYPERTENSION
     Dosage: UNK DF, UNK
     Route: 065
  2. FUROSEMIDE TABLETS USP [Suspect]
     Active Substance: FUROSEMIDE
     Indication: OEDEMA

REACTIONS (10)
  - Oedema peripheral [Unknown]
  - Lymphadenopathy [Unknown]
  - Breast cancer [Unknown]
  - Dental caries [Unknown]
  - Tooth fracture [Unknown]
  - Tooth loss [Unknown]
  - Bone disorder [Unknown]
  - Gingival disorder [Unknown]
  - Hypersomnia [Unknown]
  - Musculoskeletal disorder [Unknown]
